FAERS Safety Report 7479791-1 (Version None)
Quarter: 2011Q2

REPORT INFORMATION
  Report Type: 
  Country: None (occurrence: None)
  Receive Date: 20110513
  Receipt Date: 20110503
  Transmission Date: 20111010
  Serious: Yes (Hospitalization, Other)
  Sender: FDA-Public Use
  Company Number: US-MERCK-0709USA00505

PATIENT
  Age: 46 Year
  Sex: Female
  Weight: 76 kg

DRUGS (10)
  1. FOSAMAX [Suspect]
     Indication: OSTEOPOROSIS PROPHYLAXIS
     Route: 048
     Dates: start: 19970101, end: 20010101
  2. FOSAMAX [Suspect]
     Route: 048
     Dates: start: 20010601, end: 20060601
  3. FOLIC ACID [Concomitant]
     Route: 065
  4. DARVOCET-N 50 [Concomitant]
     Route: 065
  5. AMITRIPTYLINE HYDROCHLORIDE [Concomitant]
     Route: 065
  6. IMURAN [Concomitant]
     Indication: SYSTEMIC LUPUS ERYTHEMATOSUS
     Route: 065
  7. METHOTREXATE [Concomitant]
     Route: 065
  8. PREDNISONE [Concomitant]
     Route: 065
     Dates: start: 19860101
  9. VICODIN [Concomitant]
     Route: 065
  10. CARDIZEM [Concomitant]
     Route: 065

REACTIONS (33)
  - DYSURIA [None]
  - FALL [None]
  - GAIT DISTURBANCE [None]
  - FATIGUE [None]
  - TINNITUS [None]
  - ESCHERICHIA URINARY TRACT INFECTION [None]
  - VERTIGO POSITIONAL [None]
  - OSTEOPOROSIS [None]
  - FIBROCYSTIC BREAST DISEASE [None]
  - BREAST CALCIFICATIONS [None]
  - OSTEONECROSIS [None]
  - FIBROADENOMA OF BREAST [None]
  - CERUMEN IMPACTION [None]
  - FEMUR FRACTURE [None]
  - MUSCLE STRAIN [None]
  - FOOT FRACTURE [None]
  - STRESS FRACTURE [None]
  - BREAST HAEMATOMA [None]
  - VENTRICULAR EXTRASYSTOLES [None]
  - PALPITATIONS [None]
  - EPICONDYLITIS [None]
  - DEAFNESS [None]
  - HYPOACUSIS [None]
  - BURSITIS [None]
  - RIB FRACTURE [None]
  - HAEMATURIA [None]
  - ACUTE SINUSITIS [None]
  - RENAL DISORDER [None]
  - HYPOKALAEMIA [None]
  - OEDEMA PERIPHERAL [None]
  - MOUTH ULCERATION [None]
  - COSTOCHONDRITIS [None]
  - COUGH [None]
